FAERS Safety Report 23960307 (Version 1)
Quarter: 2024Q2

REPORT INFORMATION
  Report Type: Other
  Country: GB (occurrence: GB)
  Receive Date: 20240611
  Receipt Date: 20240611
  Transmission Date: 20240715
  Serious: Yes (Other)
  Sender: FDA-Public Use
  Company Number: None

PATIENT

DRUGS (1)
  1. GABAPENTIN [Suspect]
     Active Substance: GABAPENTIN
     Indication: Product dispensing error
     Dosage: UNK
     Route: 065
     Dates: start: 20240514

REACTIONS (2)
  - Medication error [Unknown]
  - Malaise [Unknown]
